FAERS Safety Report 4846554-2 (Version None)
Quarter: 2005Q4

REPORT INFORMATION
  Report Type: 
  Country: None (occurrence: None)
  Receive Date: 20051206
  Receipt Date: 20051111
  Transmission Date: 20060501
  Serious: Yes (Hospitalization)
  Sender: FDA-Public Use
  Company Number: BE-BOEHRINGER INGELHEIM PHARMACEUTICALS, INC.-2005-DE-04996BY

PATIENT
  Age: 86 Year
  Sex: Male

DRUGS (7)
  1. KINZALMONO [Suspect]
     Indication: HYPERTENSION
     Route: 048
     Dates: start: 20050101, end: 20051001
  2. EMCONCOR MITIS [Concomitant]
     Route: 048
     Dates: end: 20050201
  3. CORDARONE [Concomitant]
     Route: 048
  4. ZANIDIP [Concomitant]
     Route: 048
  5. XANTHIUM [Concomitant]
     Route: 048
  6. CORUNO [Concomitant]
     Route: 048
  7. OMEPRAZOLE [Concomitant]
     Route: 048

REACTIONS (2)
  - PRURITUS [None]
  - RASH MACULO-PAPULAR [None]
